FAERS Safety Report 4934084-9 (Version None)
Quarter: 2006Q1

REPORT INFORMATION
  Report Type: 
  Country: None (occurrence: None)
  Receive Date: 20060303
  Receipt Date: 20060223
  Transmission Date: 20060701
  Serious: Yes (Hospitalization, Other)
  Sender: FDA-Public Use
  Company Number: 2006026817

PATIENT
  Sex: Female
  Weight: 54.4316 kg

DRUGS (11)
  1. NEURONTIN [Suspect]
     Indication: ATTENTION DEFICIT/HYPERACTIVITY DISORDER
     Dosage: 900 MG (300 MG, 3 IN 1 D),
     Dates: start: 19980101
  2. NEURONTIN [Suspect]
     Indication: PAIN
     Dosage: 900 MG (300 MG, 3 IN 1 D),
     Dates: start: 19980101
  3. ZOLOFT [Suspect]
     Indication: DEPRESSION
     Dosage: 50 MG (50 MG, 1 IN 1 D),
  4. LAMICTAL [Suspect]
     Indication: ATTENTION DEFICIT/HYPERACTIVITY DISORDER
  5. LAMICTAL [Suspect]
     Indication: ILL-DEFINED DISORDER
  6. ALL OTHER THERAPEUTIC PRODUCTS (ALL OTHER THERAPEUTIC PRODUCTS) [Concomitant]
  7. ADDERALL (AMFETAMINE ASPARTATE, AMFETAMINE SULFATE, DEXAMFETAMINE SACH [Concomitant]
  8. LODINE [Concomitant]
  9. WELLBUTRIN [Concomitant]
  10. LASIX [Concomitant]
  11. TENORMIN [Concomitant]

REACTIONS (7)
  - ATTENTION DEFICIT/HYPERACTIVITY DISORDER [None]
  - BLOOD DISORDER [None]
  - DEPRESSION [None]
  - DRUG SCREEN FALSE POSITIVE [None]
  - GASTRIC HAEMORRHAGE [None]
  - HAEMATOTOXICITY [None]
  - SKIN LESION [None]
